FAERS Safety Report 10921693 (Version 1)
Quarter: 2015Q1

REPORT INFORMATION
  Report Type: Spontaneous
  Country: US (occurrence: US)
  Receive Date: 20150317
  Receipt Date: 20150317
  Transmission Date: 20150721
  Serious: No
  Sender: FDA-Public Use
  Company Number: US-BAYER-2015-044461

PATIENT
  Age: 88 Year
  Sex: Female
  Weight: 68.27 kg

DRUGS (1)
  1. ALEVE [Suspect]
     Active Substance: NAPROXEN SODIUM
     Indication: SLEEP DISORDER THERAPY
     Dosage: 2 DF, ONCE
     Route: 048
     Dates: start: 20150313, end: 20150313

REACTIONS (1)
  - Medication error [None]

NARRATIVE: CASE EVENT DATE: 20150313
